FAERS Safety Report 11722267 (Version 1)
Quarter: 2015Q4

REPORT INFORMATION
  Report Type: Spontaneous
  Country: US (occurrence: None)
  Receive Date: 20151110
  Receipt Date: 20151110
  Transmission Date: 20160304
  Serious: Yes (Hospitalization, Disabling)
  Sender: FDA-Public Use
  Company Number: None

PATIENT
  Age: 53 Year
  Sex: Male
  Weight: 72.58 kg

DRUGS (2)
  1. WALK WITH CANE [Concomitant]
  2. ANUCORT-HC [Suspect]
     Active Substance: HYDROCORTISONE ACETATE
     Indication: HAEMORRHOIDS

REACTIONS (6)
  - Pain [None]
  - Testicular swelling [None]
  - Local swelling [None]
  - Thrombosis [None]
  - Peripheral swelling [None]
  - Penile swelling [None]

NARRATIVE: CASE EVENT DATE: 20150930
